FAERS Safety Report 7347997-8 (Version None)
Quarter: 2011Q1

REPORT INFORMATION
  Report Type: 
  Country: None (occurrence: None)
  Receive Date: 20110311
  Receipt Date: 20110303
  Transmission Date: 20110831
  Serious: Yes (Hospitalization, Other)
  Sender: FDA-Public Use
  Company Number: PHHO2010ES17558

PATIENT
  Sex: Male
  Weight: 78 kg

DRUGS (10)
  1. BLINDED ENALAPRIL [Suspect]
     Dosage: CODE NOT BROKEN
     Route: 048
     Dates: start: 20100823, end: 20101028
  2. BLINDED NO TREATMENT RECEIVED [Suspect]
     Dosage: CODE NOT BROKEN
     Route: 048
     Dates: start: 20100823, end: 20101028
  3. ASPIRIN [Concomitant]
  4. BLINDED ALISKIREN [Suspect]
     Dosage: CODE NOT BROKEN
     Route: 048
     Dates: start: 20100823, end: 20101028
  5. COMPARATOR ENALAPRIL [Suspect]
     Indication: CARDIAC FAILURE
     Dosage: UNK
     Route: 048
     Dates: start: 20100610, end: 20101124
  6. NEBIVOLOL [Suspect]
  7. DIGOXIN [Concomitant]
  8. FLURAZEPAM [Concomitant]
  9. ALISKIREN [Suspect]
     Indication: CARDIAC FAILURE
     Dosage: UNK
     Route: 048
     Dates: start: 20100726, end: 20100823
  10. FUROSEMIDE [Concomitant]

REACTIONS (5)
  - DYSPNOEA [None]
  - RENAL IMPAIRMENT [None]
  - CARDIAC FAILURE [None]
  - FEELING ABNORMAL [None]
  - HYPOTENSION [None]
